FAERS Safety Report 6568194-X (Version None)
Quarter: 2010Q1

REPORT INFORMATION
  Report Type: 
  Country: None (occurrence: None)
  Receive Date: 20100203
  Receipt Date: 20100127
  Transmission Date: 20100710
  Serious: Yes (Death)
  Sender: FDA-Public Use
  Company Number: JP-ROCHE-642665

PATIENT
  Age: 42 Year
  Sex: Female

DRUGS (8)
  1. HERCEPTIN [Suspect]
     Indication: BREAST CANCER FEMALE
     Route: 041
     Dates: start: 20050101, end: 20050101
  2. HERCEPTIN [Suspect]
     Route: 041
     Dates: start: 20050101, end: 20060101
  3. PACLITAXEL [Concomitant]
     Route: 041
  4. NAVELBINE [Concomitant]
     Dosage: ROUTE: INTRAVENOUS (NOT OTHERWISE SPECIFIED)
     Route: 042
  5. AQUPLA [Concomitant]
     Dosage: ROUTE: INTRAVENOUS (NOT OTHERWISE SPECIFIED)
     Route: 042
  6. 5-FU [Concomitant]
     Route: 041
  7. CARBOPLATIN [Concomitant]
     Route: 041
  8. ETOPOSIDE [Concomitant]

REACTIONS (1)
  - DISEASE PROGRESSION [None]
